FAERS Safety Report 5154990-2 (Version None)
Quarter: 2006Q4

REPORT INFORMATION
  Report Type: 
  Country: None (occurrence: None)
  Receive Date: 20061121
  Receipt Date: 20061023
  Transmission Date: 20070319
  Serious: Yes (Hospitalization)
  Sender: FDA-Public Use
  Company Number: NL-ELI_LILLY_AND_COMPANY-NL200610004027

PATIENT
  Sex: Female

DRUGS (1)
  1. LISPRO REGLISPRO [Suspect]
     Route: 058

REACTIONS (1)
  - MALAISE [None]
